FAERS Safety Report 9396035 (Version 1)
Quarter: 2013Q3

REPORT INFORMATION
  Report Type: Spontaneous
  Country: US (occurrence: US)
  Receive Date: 20130711
  Receipt Date: 20130711
  Transmission Date: 20140515
  Serious: Yes (Other)
  Sender: FDA-Public Use
  Company Number: US-TEVA-418228USA

PATIENT
  Age: 27 Year
  Sex: Female

DRUGS (2)
  1. PARAGARD 380A [Suspect]
     Indication: CONTRACEPTION
     Route: 015
     Dates: start: 2006, end: 20130709
  2. NEXPLANON [Concomitant]
     Indication: CONTRACEPTION
     Dates: start: 201305

REACTIONS (1)
  - Embedded device [Not Recovered/Not Resolved]
